FAERS Safety Report 16251554 (Version 1)
Quarter: 2019Q2

REPORT INFORMATION
  Report Type: Spontaneous
  Country: US (occurrence: US)
  Receive Date: 20190426
  Receipt Date: 20190426
  Transmission Date: 20190711
  Serious: Yes (Hospitalization)
  Sender: FDA-Public Use
  Company Number: None

PATIENT
  Age: 56 Year
  Sex: Male

DRUGS (4)
  1. TRAMADOL 50MG TABLET [Concomitant]
     Dates: start: 20190402
  2. PREDNISONE 5 MG TABLET [Concomitant]
     Dates: start: 20190304, end: 20190403
  3. ENBREL [Suspect]
     Active Substance: ETANERCEPT
     Indication: RHEUMATOID ARTHRITIS
     Dosage: ?          OTHER FREQUENCY:ONCE A WEEK;?
     Route: 058
     Dates: start: 20190312
  4. ALLOPURINOL 300MG TABLET [Concomitant]
     Dates: start: 20190304, end: 20190403

REACTIONS (2)
  - Tinnitus [None]
  - Injection site reaction [None]

NARRATIVE: CASE EVENT DATE: 20190407
